FAERS Safety Report 9242061 (Version 1)
Quarter: 2013Q2

REPORT INFORMATION
  Report Type: Spontaneous
  Country: US (occurrence: US)
  Receive Date: 20130419
  Receipt Date: 20130419
  Transmission Date: 20140414
  Serious: No
  Sender: FDA-Public Use
  Company Number: US-BAYER-2013-049497

PATIENT
  Sex: Female

DRUGS (2)
  1. ALEVE CAPLET [Suspect]
     Indication: ARTHRITIS
     Dosage: 3 DF, HS (AT NIGHT)
     Route: 048
     Dates: start: 20130207
  2. ICY HOT [Concomitant]
     Indication: ARTHRITIS
     Dosage: UNK UNK, HS
     Dates: start: 20130207

REACTIONS (2)
  - Drug ineffective [None]
  - Inappropriate schedule of drug administration [None]
